FAERS Safety Report 9339821 (Version 2)
Quarter: 2013Q3

REPORT INFORMATION
  Report Type: Spontaneous
  Country: US (occurrence: US)
  Receive Date: 20130610
  Receipt Date: 20130807
  Transmission Date: 20140515
  Serious: Yes (Hospitalization, Disabling, Other)
  Sender: FDA-Public Use
  Company Number: US-009507513-2010SP026335

PATIENT
  Sex: Female
  Weight: 62.6 kg

DRUGS (2)
  1. NUVARING [Suspect]
     Indication: CONTRACEPTION
     Dosage: UNK
     Route: 067
     Dates: start: 200912, end: 20100219
  2. NUVARING [Suspect]
     Dosage: UNK
     Route: 067
     Dates: start: 200512, end: 200601

REACTIONS (5)
  - Ovarian cyst [Unknown]
  - Cervical dysplasia [Unknown]
  - Deep vein thrombosis [Recovering/Resolving]
  - Chlamydial infection [Unknown]
  - Unintended pregnancy [Recovered/Resolved]
